FAERS Safety Report 6979696-6 (Version None)
Quarter: 2010Q3

REPORT INFORMATION
  Report Type: 
  Country: None (occurrence: None)
  Receive Date: 20100908
  Receipt Date: 20100827
  Transmission Date: 20110219
  Serious: Yes (Other)
  Sender: FDA-Public Use
  Company Number: DKLU1064789

PATIENT

DRUGS (1)
  1. ELSPAR [Suspect]
     Indication: ACUTE LYMPHOCYTIC LEUKAEMIA

REACTIONS (7)
  - CEREBRAL HAEMORRHAGE [None]
  - CEREBRAL ISCHAEMIA [None]
  - COAGULOPATHY [None]
  - ELECTROENCEPHALOGRAM ABNORMAL [None]
  - ENCEPHALITIS [None]
  - GRAND MAL CONVULSION [None]
  - MENINGEAL DISORDER [None]
